FAERS Safety Report 5324765-X (Version None)
Quarter: 2007Q2

REPORT INFORMATION
  Report Type: 
  Country: None (occurrence: None)
  Receive Date: 20070515
  Receipt Date: 20070505
  Transmission Date: 20071010
  Serious: Yes (Other)
  Sender: FDA-Public Use
  Company Number: PHEH2007US07221

PATIENT

DRUGS (2)
  1. LASIX [Suspect]
     Indication: CARDIAC FAILURE CONGESTIVE
  2. TEKTURNA [Suspect]
     Dosage: 150 MG, QD

REACTIONS (2)
  - CARDIAC FAILURE CONGESTIVE [None]
  - DRUG INTERACTION [None]
